FAERS Safety Report 10160217 (Version 2)
Quarter: 2014Q3

REPORT INFORMATION
  Report Type: Spontaneous
  Country: US (occurrence: US)
  Receive Date: 20140508
  Receipt Date: 20140805
  Transmission Date: 20150326
  Serious: Yes (Hospitalization, Other)
  Sender: FDA-Public Use
  Company Number: US-BAYER-2014-065717

PATIENT
  Age: 34 Year
  Sex: Female
  Weight: 86.17 kg

DRUGS (2)
  1. YASMIN [Suspect]
     Active Substance: DROSPIRENONE\ETHINYL ESTRADIOL
     Dosage: UNK
     Route: 048
     Dates: start: 2001, end: 2013
  2. OCELLA [Suspect]
     Active Substance: DROSPIRENONE\ETHINYL ESTRADIOL
     Dosage: UNK
     Dates: start: 2001, end: 2013

REACTIONS (14)
  - Liver carcinoma ruptured [None]
  - Hepatic adenoma [None]
  - Thrombosis [None]
  - Pain [None]
  - Embolism [None]
  - Anxiety [None]
  - Gallbladder disorder [None]
  - Injury [None]
  - Nephropathy [None]
  - Psychological trauma [None]
  - Hernia [None]
  - Anhedonia [None]
  - Intra-abdominal haemorrhage [None]
  - Attention deficit/hyperactivity disorder [None]

NARRATIVE: CASE EVENT DATE: 2013
